FAERS Safety Report 24132004 (Version 2)
Quarter: 2024Q4

REPORT INFORMATION
  Report Type: Spontaneous
  Country: FR (occurrence: FR)
  Receive Date: 20240724
  Receipt Date: 20241004
  Transmission Date: 20250115
  Serious: Yes (Other)
  Sender: PFIZER
  Company Number: FR-ROCHE-3554837

PATIENT
  Age: 64 Year
  Sex: Male
  Weight: 85 kg

DRUGS (8)
  1. BEVACIZUMAB [Suspect]
     Active Substance: BEVACIZUMAB
     Indication: Hepatocellular carcinoma
     Dosage: 1560 MG, EVERY 3 WEEKS
     Route: 042
     Dates: start: 20231220
  2. BEVACIZUMAB [Suspect]
     Active Substance: BEVACIZUMAB
     Dosage: 1370 MG, EVERY 3 WEEKS
     Route: 042
     Dates: start: 20240402
  3. ATEZOLIZUMAB [Suspect]
     Active Substance: ATEZOLIZUMAB
     Indication: Hepatocellular carcinoma
     Dosage: 1200 MG, EVERY 3 WEEKS
     Route: 042
     Dates: start: 20231220
  4. TIRAGOLUMAB [Suspect]
     Active Substance: TIRAGOLUMAB
     Indication: Hepatocellular carcinoma
     Dosage: EVERY 3 WEEKS
     Route: 042
     Dates: start: 20231220
  5. TIRAGOLUMAB [Suspect]
     Active Substance: TIRAGOLUMAB
     Dosage: UNK
     Dates: start: 20240402
  6. PREDNISOLONE [Concomitant]
     Active Substance: PREDNISOLONE
     Dosage: 60 MG, 1X/DAY
     Route: 048
     Dates: start: 20240402, end: 20240402
  7. POLARAMINE [Concomitant]
     Active Substance: DEXCHLORPHENIRAMINE MALEATE
     Dosage: 5 MG, 1X/DAY
     Route: 042
     Dates: start: 20240423, end: 20240423
  8. IRBESARTAN [Concomitant]
     Active Substance: IRBESARTAN
     Dosage: 150 MG, 1X/DAY
     Route: 048
     Dates: start: 20231218

REACTIONS (2)
  - Anaphylactic reaction [Recovered/Resolved]
  - Off label use [Unknown]

NARRATIVE: CASE EVENT DATE: 20231220
